FAERS Safety Report 24104682 (Version 1)
Quarter: 2024Q3

REPORT INFORMATION
  Report Type: Spontaneous
  Country: US (occurrence: None)
  Receive Date: 20240716
  Receipt Date: 20240716
  Transmission Date: 20241017
  Serious: Yes (Hospitalization)
  Sender: Public
  Company Number: None

PATIENT
  Age: 31 Year
  Sex: Male
  Weight: 58.4 kg

DRUGS (1)
  1. YESCARTA [Suspect]
     Active Substance: AXICABTAGENE CILOLEUCEL
     Indication: Burkitt^s lymphoma
     Dates: start: 20240625, end: 20240625

REACTIONS (4)
  - Cerebrovascular accident [None]
  - Neurotoxicity [None]
  - Seizure [None]
  - Bradycardia [None]

NARRATIVE: CASE EVENT DATE: 20240629
